FAERS Safety Report 5280875-7 (Version None)
Quarter: 2007Q1

REPORT INFORMATION
  Report Type: 
  Country: None (occurrence: None)
  Receive Date: 20070329
  Receipt Date: 20070327
  Transmission Date: 20070707
  Serious: Yes (Death, Hospitalization)
  Sender: FDA-Public Use
  Company Number: ZA-BOEHRINGER INGELHEIM PHARMACEUTICALS, INC.-2007-BP-04266BP

PATIENT
  Sex: Female
  Weight: 73 kg

DRUGS (3)
  1. VIRAMUNE [Suspect]
     Indication: HIV INFECTION
     Route: 048
     Dates: start: 20070220, end: 20070313
  2. TRUVADA [Suspect]
     Indication: HIV INFECTION
     Dosage: 200MG/300MG
     Route: 048
     Dates: start: 20070220, end: 20070313
  3. BACTRIM [Concomitant]

REACTIONS (1)
  - DEATH [None]
